FAERS Safety Report 7609147-X (Version None)
Quarter: 2011Q3

REPORT INFORMATION
  Report Type: 
  Country: None (occurrence: None)
  Receive Date: 20110714
  Receipt Date: 20110706
  Transmission Date: 20111222
  Serious: Yes (Other)
  Sender: FDA-Public Use
  Company Number: US-JNJFOC-20110606055

PATIENT
  Age: 22 Year
  Sex: Male
  Weight: 80.74 kg

DRUGS (3)
  1. REMICADE [Suspect]
     Indication: CROHN'S DISEASE
     Route: 042
     Dates: start: 20110101
  2. REMICADE [Suspect]
     Dosage: 2ND INDUCTION DOSE
     Route: 042
     Dates: start: 20110526
  3. REMICADE [Suspect]
     Route: 042
     Dates: start: 20010101

REACTIONS (2)
  - INFUSION RELATED REACTION [None]
  - DYSTONIA [None]
